FAERS Safety Report 14803844 (Version 1)
Quarter: 2018Q2

REPORT INFORMATION
  Report Type: Spontaneous
  Country: PT (occurrence: PT)
  Receive Date: 20180425
  Receipt Date: 20180425
  Transmission Date: 20180711
  Serious: Yes (Hospitalization, Other)
  Sender: FDA-Public Use
  Company Number: PT-SUN PHARMACEUTICAL INDUSTRIES LTD-2018RR-170959

PATIENT
  Age: 58 Year
  Sex: Female
  Weight: 90 kg

DRUGS (8)
  1. ENOXAPARIN SODIUM. [Concomitant]
     Active Substance: ENOXAPARIN SODIUM
     Indication: THROMBOSIS
     Dosage: 60 MG, BID
     Route: 062
     Dates: start: 20170130
  2. PREZOLE (PANTOPRAZOLE SODIUM) [Concomitant]
     Indication: PROPHYLAXIS
     Dosage: 20 MG, QD
     Route: 048
     Dates: start: 2017
  3. VALPROIC ACID. [Concomitant]
     Active Substance: VALPROIC ACID
     Indication: CONVULSION PROPHYLAXIS
     Dosage: 500 MG, BID
     Route: 048
     Dates: start: 2017
  4. TEMOZOLOMIDE. [Suspect]
     Active Substance: TEMOZOLOMIDE
     Indication: GLIOBLASTOMA MULTIFORME
     Dosage: 75 MG/M2,  QD
     Route: 048
     Dates: start: 20170214, end: 20170320
  5. DEXAMETHASONE. [Concomitant]
     Active Substance: DEXAMETHASONE
     Indication: PROPHYLAXIS
     Dosage: 1 MG, QD
     Route: 048
     Dates: start: 20170210
  6. SULFAMETHOXAZOLE (+) TRIMETHOPRIM [Concomitant]
     Active Substance: SULFAMETHOXAZOLE\TRIMETHOPRIM
     Indication: PROPHYLAXIS
     Dosage: DAILY DOSE: 960 MG, 12/12 H 3X WEEK ()
     Route: 048
     Dates: start: 20170214
  7. ONDANSETRON [Concomitant]
     Active Substance: ONDANSETRON
     Indication: PROPHYLAXIS OF NAUSEA AND VOMITING
     Dosage: 8 MG, QD
     Route: 048
     Dates: start: 20170214
  8. LEVETIRACETAM. [Concomitant]
     Active Substance: LEVETIRACETAM
     Indication: CONVULSION PROPHYLAXIS
     Dosage: 1000 MG, BID ()
     Route: 048
     Dates: start: 20170213

REACTIONS (5)
  - Thrombocytopenia [Unknown]
  - Cerebral haemorrhage [Not Recovered/Not Resolved]
  - Pyrexia [Recovered/Resolved]
  - Pyrexia [Recovered/Resolved]
  - Thrombocytopenia [Recovered/Resolved]

NARRATIVE: CASE EVENT DATE: 20170313
